FAERS Safety Report 24825916 (Version 1)
Quarter: 2025Q1

REPORT INFORMATION
  Report Type: Spontaneous
  Country: US (occurrence: US)
  Receive Date: 20250109
  Receipt Date: 20250109
  Transmission Date: 20250408
  Serious: Yes (Hospitalization, Other)
  Sender: SANOFI AVENTIS
  Company Number: US-SA-2025SA006150

PATIENT
  Age: 93 Year
  Sex: Male

DRUGS (3)
  1. DUPIXENT [Suspect]
     Active Substance: DUPILUMAB
     Indication: Neurodermatitis
     Route: 058
     Dates: start: 20240314, end: 20240314
  2. DUPIXENT [Suspect]
     Active Substance: DUPILUMAB
     Dosage: 300 MG, QOW
     Route: 058
     Dates: start: 202403
  3. PROLIA [Concomitant]
     Active Substance: DENOSUMAB

REACTIONS (11)
  - Nasal sinus cancer [Unknown]
  - Sternal fracture [Unknown]
  - Cervical vertebral fracture [Unknown]
  - Malignant melanoma [Unknown]
  - Metastasis [Unknown]
  - Concussion [Unknown]
  - Skin laceration [Unknown]
  - Diarrhoea [Unknown]
  - Constipation [Unknown]
  - Swelling [Unknown]
  - Pulmonary mass [Unknown]

NARRATIVE: CASE EVENT DATE: 20240101
